FAERS Safety Report 8606157-0 (Version None)
Quarter: 2012Q3

REPORT INFORMATION
  Report Type: 
  Country: None (occurrence: None)
  Receive Date: 20120820
  Receipt Date: 19900521
  Transmission Date: 20120928
  Serious: Yes (Other)
  Sender: FDA-Public Use
  Company Number: US-ROCHE-1100729

PATIENT
  Sex: Male

DRUGS (4)
  1. NITROGLYCERIN [Concomitant]
  2. ACTIVASE [Suspect]
     Indication: MYOCARDIAL INFARCTION
  3. HEPARIN [Concomitant]
  4. LIDOCAINE [Concomitant]

REACTIONS (5)
  - HYPOTENSION [None]
  - VOMITING [None]
  - DIZZINESS [None]
  - BRADYCARDIA [None]
  - HAEMATOMA [None]
